FAERS Safety Report 13860636 (Version 1)
Quarter: 2017Q3

REPORT INFORMATION
  Report Type: Spontaneous
  Country: US (occurrence: US)
  Receive Date: 20170811
  Receipt Date: 20170811
  Transmission Date: 20171127
  Serious: Yes (Hospitalization)
  Sender: FDA-Public Use
  Company Number: None

PATIENT
  Age: 48 Year
  Sex: Female

DRUGS (9)
  1. FOLIC ACID. [Concomitant]
     Active Substance: FOLIC ACID
  2. HYDROXYCHLOR [Concomitant]
     Active Substance: HYDROXYCHLOROQUINE
  3. CEPHALEXIN. [Concomitant]
     Active Substance: CEPHALEXIN
  4. ENBREL [Suspect]
     Active Substance: ETANERCEPT
     Indication: RHEUMATOID ARTHRITIS
     Route: 058
     Dates: start: 20161107, end: 20170727
  5. FLUCONAZOLE. [Concomitant]
     Active Substance: FLUCONAZOLE
  6. LEUCOVOR [Concomitant]
  7. NITROFURANTIN [Concomitant]
     Active Substance: NITROFURANTOIN
  8. METHYLPRED [Concomitant]
     Active Substance: METHYLPREDNISOLONE
  9. VALACYCLOVIR [Concomitant]
     Active Substance: VALACYCLOVIR HYDROCHLORIDE

REACTIONS (4)
  - Urinary tract infection [None]
  - Blood electrolytes decreased [None]
  - Drug dose omission [None]
  - Arthralgia [None]

NARRATIVE: CASE EVENT DATE: 20170710
